FAERS Safety Report 14018852 (Version 1)
Quarter: 2017Q3

REPORT INFORMATION
  Report Type: Report from Study
  Country: None (occurrence: BR)
  Receive Date: 20170928
  Receipt Date: 20170928
  Transmission Date: 20171128
  Serious: Yes (Hospitalization)
  Sender: FDA-Public Use
  Company Number: BR-ABBVIE-17K-020-2110862-00

PATIENT
  Sex: Female

DRUGS (1)
  1. HUMIRA [Suspect]
     Active Substance: ADALIMUMAB
     Indication: PSORIATIC ARTHROPATHY
     Route: 058
     Dates: start: 20161005

REACTIONS (12)
  - Vomiting [Recovered/Resolved]
  - Psychiatric symptom [Unknown]
  - Bradyphrenia [Recovering/Resolving]
  - Fatigue [Recovered/Resolved]
  - Memory impairment [Recovering/Resolving]
  - Musculoskeletal pain [Unknown]
  - Fatigue [Unknown]
  - Nausea [Unknown]
  - Disorientation [Recovering/Resolving]
  - Burnout syndrome [Unknown]
  - Skin irritation [Unknown]
  - Psychiatric symptom [Recovered/Resolved]
